FAERS Safety Report 25871308 (Version 1)
Quarter: 2025Q4

REPORT INFORMATION
  Report Type: Spontaneous
  Country: EU (occurrence: EU)
  Receive Date: 20251001
  Receipt Date: 20251001
  Transmission Date: 20260118
  Serious: Yes (Hospitalization)
  Sender: MYLAN
  Company Number: None

PATIENT
  Age: 73 Year
  Sex: Female
  Weight: 64 kg

DRUGS (6)
  1. GEMCITABINE [Suspect]
     Active Substance: GEMCITABINE
     Indication: Product used for unknown indication
     Dosage: 1720 MILLIGRAM, 1 CYCLE
     Dates: start: 20250715
  2. GEMCITABINE [Suspect]
     Active Substance: GEMCITABINE
     Dosage: 1720 MILLIGRAM, 1 CYCLE
     Dates: start: 20250730
  3. GEMCITABINE [Suspect]
     Active Substance: GEMCITABINE
     Dosage: 1720 MILLIGRAM,1 CYCLE
     Dates: start: 20250820
  4. ABRAXANE [Concomitant]
     Active Substance: PACLITAXEL
     Indication: Neoplasm malignant
     Dosage: 170 MILLIGRAM, 1 CYCLE, -20%
     Dates: start: 20250715
  5. ABRAXANE [Concomitant]
     Active Substance: PACLITAXEL
     Dosage: 170 MILLIGRAM, 1 CYCLE, -20%
     Dates: start: 20250806
  6. ABRAXANE [Concomitant]
     Active Substance: PACLITAXEL
     Dosage: 170 MILLIGRAM, 1 CYCLE, -20%
     Dates: start: 20250820

REACTIONS (2)
  - Lung disorder [Recovering/Resolving]
  - Rash maculo-papular [Recovering/Resolving]

NARRATIVE: CASE EVENT DATE: 20250827
